FAERS Safety Report 10072022 (Version 1)
Quarter: 2014Q2

REPORT INFORMATION
  Report Type: Spontaneous
  Country: NO (occurrence: NO)
  Receive Date: 20140411
  Receipt Date: 20140411
  Transmission Date: 20141212
  Serious: Yes (Other)
  Sender: FDA-Public Use
  Company Number: NO-UCBSA-117922

PATIENT
  Age: 11 Year
  Sex: Male

DRUGS (1)
  1. EQUASYM DEPOT [Suspect]
     Indication: ATTENTION DEFICIT/HYPERACTIVITY DISORDER
     Route: 048
     Dates: start: 20111012, end: 20120125

REACTIONS (2)
  - Ventricular extrasystoles [Not Recovered/Not Resolved]
  - Drug ineffective [Recovered/Resolved]
